FAERS Safety Report 24372645 (Version 3)
Quarter: 2024Q4

REPORT INFORMATION
  Report Type: Report from Study
  Country: CA (occurrence: CA)
  Receive Date: 20240927
  Receipt Date: 20241217
  Transmission Date: 20250114
  Serious: Yes (Other)
  Sender: TAKEDA
  Company Number: CA-TAKEDA-2024TUS092922

PATIENT
  Sex: Female

DRUGS (2)
  1. VEDOLIZUMAB [Suspect]
     Active Substance: VEDOLIZUMAB
     Indication: Crohn^s disease
     Dosage: 300 MILLIGRAM
  2. VEDOLIZUMAB [Suspect]
     Active Substance: VEDOLIZUMAB
     Indication: Crohn^s disease
     Dosage: 108 MILLIGRAM, Q2WEEKS
     Dates: start: 20241015

REACTIONS (12)
  - Urinary retention [Unknown]
  - Nocturia [Recovering/Resolving]
  - Visual impairment [Recovering/Resolving]
  - Bile acid malabsorption [Recovering/Resolving]
  - Defaecation urgency [Unknown]
  - Orthostatic hypotension [Unknown]
  - Anal incontinence [Recovering/Resolving]
  - Hypoaesthesia [Unknown]
  - Malaise [Unknown]
  - Discouragement [Unknown]
  - Drug effect less than expected [Unknown]
  - Abdominal pain [Unknown]
